FAERS Safety Report 8702267 (Version 3)
Quarter: 2014Q1

REPORT INFORMATION
  Report Type: Spontaneous
  Country: AT (occurrence: AT)
  Receive Date: 20120803
  Receipt Date: 20140312
  Transmission Date: 20141002
  Serious: Yes (Life-Threatening, Hospitalization)
  Sender: FDA-Public Use
  Company Number: AT-MYLANLABS-2012S1015055

PATIENT
  Age: 22 Year
  Sex: Female
  Weight: 46 kg

DRUGS (1)
  1. FUROSEMIDE [Suspect]
     Indication: DRUG ABUSE
     Dosage: 250 MG/DAY
     Route: 065

REACTIONS (10)
  - Hypokalaemia [Recovering/Resolving]
  - Rhabdomyolysis [Recovering/Resolving]
  - Off label use [Recovering/Resolving]
  - Hyponatraemia [Recovering/Resolving]
  - Metabolic alkalosis [Recovering/Resolving]
  - Renal failure [Recovering/Resolving]
  - Electrocardiogram QT prolonged [Recovering/Resolving]
  - Electrocardiogram ST segment abnormal [Recovering/Resolving]
  - Vomiting [Recovering/Resolving]
  - Diarrhoea [Recovering/Resolving]
